FAERS Safety Report 25493917 (Version 1)
Quarter: 2025Q2

REPORT INFORMATION
  Report Type: Spontaneous
  Country: TW (occurrence: TW)
  Receive Date: 20250630
  Receipt Date: 20250630
  Transmission Date: 20250716
  Serious: Yes (Disabling)
  Sender: PFIZER
  Company Number: TW-PFIZER INC-PV202500076898

PATIENT
  Age: 21 Year
  Sex: Male

DRUGS (2)
  1. XYNTHA [Suspect]
     Active Substance: MOROCTOCOG ALFA
     Indication: Prophylaxis
     Dates: start: 20180904
  2. XYNTHA [Suspect]
     Active Substance: MOROCTOCOG ALFA
     Route: 042

REACTIONS (2)
  - Joint swelling [Recovered/Resolved]
  - Haemarthrosis [Recovered/Resolved]

NARRATIVE: CASE EVENT DATE: 20250623
